FAERS Safety Report 16718000 (Version 2)
Quarter: 2019Q3

REPORT INFORMATION
  Report Type: Report from Study
  Country: MX (occurrence: MX)
  Receive Date: 20190819
  Receipt Date: 20190904
  Transmission Date: 20191005
  Serious: Yes (Hospitalization, Other)
  Sender: FDA-Public Use
  Company Number: PHHY2019MX192775

PATIENT
  Age: 66 Year
  Sex: Female
  Weight: 67 kg

DRUGS (3)
  1. TRAYENTA DUO [Concomitant]
     Active Substance: LINAGLIPTIN\METFORMIN HYDROCHLORIDE
     Indication: DIABETES MELLITUS
     Dosage: 2 DF(2.5MG/ 100MG), UNK
     Route: 048
     Dates: start: 201907
  2. GALVUS [Suspect]
     Active Substance: VILDAGLIPTIN
     Indication: DIABETES MELLITUS
     Dosage: 1 DF, BID
     Route: 048
     Dates: start: 201806
  3. METFORMIN [Concomitant]
     Active Substance: METFORMIN HYDROCHLORIDE
     Indication: DIABETES MELLITUS
     Dosage: 2 DF, QD
     Route: 048
     Dates: start: 201905, end: 201907

REACTIONS (9)
  - Diabetes mellitus inadequate control [Recovered/Resolved]
  - Hepatic cirrhosis [Recovering/Resolving]
  - Decreased immune responsiveness [Recovered/Resolved]
  - Spleen disorder [Recovered/Resolved]
  - Iron deficiency [Unknown]
  - Visual impairment [Recovering/Resolving]
  - Increased steroid activity [Recovered/Resolved]
  - Papilloedema [Recovered/Resolved]
  - Epistaxis [Recovered/Resolved]

NARRATIVE: CASE EVENT DATE: 201811
